FAERS Safety Report 13539196 (Version 1)
Quarter: 2017Q2

REPORT INFORMATION
  Report Type: Spontaneous
  Country: MY (occurrence: MY)
  Receive Date: 20170512
  Receipt Date: 20170512
  Transmission Date: 20170830
  Serious: Yes (Other)
  Sender: FDA-Public Use
  Company Number: MY-STRIDES ARCOLAB LIMITED-2017SP007627

PATIENT

DRUGS (4)
  1. CALCITRIOL. [Suspect]
     Active Substance: CALCITRIOL
     Indication: PROPHYLAXIS
  2. CALCIUM GLUCONATE. [Suspect]
     Active Substance: CALCIUM GLUCONATE
     Indication: PROPHYLAXIS
  3. CALCITRIOL. [Suspect]
     Active Substance: CALCITRIOL
     Indication: HYPOCALCAEMIA
     Dosage: UNK, UNKNOWN
     Route: 065
  4. CALCIUM GLUCONATE. [Suspect]
     Active Substance: CALCIUM GLUCONATE
     Indication: HYPOCALCAEMIA
     Dosage: AT INFUSION RATE OF 10 ML/H
     Route: 042

REACTIONS (2)
  - Hypercalcaemia [Unknown]
  - Incorrect drug administration rate [Unknown]
